FAERS Safety Report 8068197-2 (Version None)
Quarter: 2012Q1

REPORT INFORMATION
  Report Type: 
  Country: None (occurrence: None)
  Receive Date: 20120124
  Receipt Date: 20111003
  Transmission Date: 20120608
  Serious: No
  Sender: FDA-Public Use
  Company Number: US-AMGEN-USASP2011051006

PATIENT
  Age: 88 Year
  Sex: Female

DRUGS (7)
  1. VITAMIN D [Concomitant]
     Dosage: 1 IU, QWK
  2. NEXIUM [Concomitant]
     Dosage: UNK
  3. OMEGA 3                            /01334101/ [Concomitant]
     Dosage: UNK
  4. PROLIA [Suspect]
     Indication: OSTEOPOROSIS POSTMENOPAUSAL
     Dosage: 60 MG, Q6MO
     Dates: start: 20110901
  5. LISINOPRIL [Concomitant]
     Dosage: 1 MG, QD
  6. AMLODIPINE [Concomitant]
     Dosage: 1 MG, QD
  7. CALCIUM [Concomitant]
     Dosage: UNK, QD

REACTIONS (2)
  - DRUG INEFFECTIVE [None]
  - CONSTIPATION [None]
